FAERS Safety Report 5875985-7 (Version None)
Quarter: 2008Q3

REPORT INFORMATION
  Report Type: 
  Country: None (occurrence: None)
  Receive Date: 20080910
  Receipt Date: 20070809
  Transmission Date: 20090109
  Serious: No
  Sender: FDA-Public Use
  Company Number: US-KINGPHARMUSA00001-K200701009

PATIENT

DRUGS (1)
  1. FLORINEF [Suspect]

REACTIONS (1)
  - BREAST TENDERNESS [None]
